FAERS Safety Report 19757631 (Version 1)
Quarter: 2021Q3

REPORT INFORMATION
  Report Type: Spontaneous
  Country: JP (occurrence: JP)
  Receive Date: 20210827
  Receipt Date: 20210827
  Transmission Date: 20211014
  Serious: Yes (Other)
  Sender: FDA-Public Use
  Company Number: JP-RISING PHARMA HOLDINGS, INC.-2021RIS000070

PATIENT
  Age: 69 Year
  Sex: Male

DRUGS (2)
  1. PREGABALIN. [Suspect]
     Active Substance: PREGABALIN
     Indication: SCIATICA
     Dosage: 600 MILLIGRAM, QD
     Route: 065
  2. TELMISARTAN. [Concomitant]
     Active Substance: TELMISARTAN
     Indication: HYPERTENSION
     Dosage: 40 MILLIGRAM, QD
     Route: 065

REACTIONS (8)
  - Depression [Recovering/Resolving]
  - Chest pain [Recovering/Resolving]
  - Product use in unapproved indication [Unknown]
  - Drug withdrawal syndrome [Recovering/Resolving]
  - Insomnia [Recovering/Resolving]
  - Asphyxia [Recovering/Resolving]
  - Chest discomfort [Recovering/Resolving]
  - Chills [Recovering/Resolving]
